FAERS Safety Report 8974932 (Version 1)
Quarter: 2012Q4

REPORT INFORMATION
  Report Type: 
  Country: US (occurrence: US)
  Receive Date: 20121219
  Receipt Date: 20121219
  Transmission Date: 20130627
  Serious: Yes (Other)
  Sender: FDA-Public Use
  Company Number: US-PFIZER INC-2012321829

PATIENT
  Age: 52 Year
  Sex: Male
  Weight: 103 kg

DRUGS (8)
  1. LIPITOR [Suspect]
     Indication: HIGH CHOLESTEROL
     Dosage: 40 mg, daily
     Dates: start: 20121205, end: 20121215
  2. LIPITOR [Suspect]
     Indication: TRIGLYCERIDES HIGH
  3. PRAVASTATIN SODIUM [Suspect]
     Indication: HIGH CHOLESTEROL
     Dosage: 40 mg, daily
     Dates: start: 201102, end: 2012
  4. PRAVASTATIN SODIUM [Suspect]
     Indication: TRIGLYCERIDES HIGH
  5. TOPROL [Concomitant]
     Indication: BLOOD PRESSURE HIGH
     Dosage: 50 mg, daily
  6. HYDROCHLOROTHIAZIDE [Concomitant]
     Indication: DIURETIC THERAPY
     Dosage: 12.5 mg, daily
  7. ASPIRIN [Concomitant]
     Indication: BLOOD PRESSURE HIGH
     Dosage: 81 mg, daily
  8. VITAMIN B COMPLEX [Concomitant]
     Indication: SUPPLEMENTATION THERAPY
     Dosage: UNK, daily

REACTIONS (12)
  - Joint injury [Unknown]
  - Nephropathy [Not Recovered/Not Resolved]
  - Aphonia [Recovering/Resolving]
  - Urticaria [Recovering/Resolving]
  - Rash [Recovering/Resolving]
  - Blister [Recovering/Resolving]
  - Feeling hot [Recovering/Resolving]
  - Blood creatinine increased [Unknown]
  - Pruritus [Recovering/Resolving]
  - Swelling [Recovering/Resolving]
  - Erythema [Recovering/Resolving]
  - Skin irritation [Recovering/Resolving]
